FAERS Safety Report 12879107 (Version 8)
Quarter: 2019Q1

REPORT INFORMATION
  Report Type: Report from Study
  Country: US (occurrence: US)
  Receive Date: 20161024
  Receipt Date: 20190328
  Transmission Date: 20190417
  Serious: No
  Sender: FDA-Public Use
  Company Number: PHHY2016US099733

PATIENT
  Age: 63 Year
  Sex: Female

DRUGS (3)
  1. KRILL OIL [Concomitant]
     Active Substance: DIETARY SUPPLEMENT
     Indication: PRODUCT USED FOR UNKNOWN INDICATION
     Dosage: UNK
     Route: 065
     Dates: start: 20140107
  2. VITAMIN B [Concomitant]
     Active Substance: VITAMIN B
     Indication: PRODUCT USED FOR UNKNOWN INDICATION
     Dosage: UNK
     Route: 065
     Dates: start: 20160601
  3. GILENYA [Suspect]
     Active Substance: FINGOLIMOD HYDROCHLORIDE
     Indication: MULTIPLE SCLEROSIS
     Dosage: UNK, QD
     Route: 048

REACTIONS (24)
  - Intervertebral disc degeneration [Unknown]
  - Haemorrhoids [Unknown]
  - Upper respiratory tract infection [Recovered/Resolved]
  - Large intestine polyp [Recovered/Resolved]
  - Tremor [Unknown]
  - Muscular weakness [Unknown]
  - Arthralgia [Unknown]
  - Ligament sprain [Recovered/Resolved]
  - Gait disturbance [Recovered/Resolved]
  - Tremor [Recovered/Resolved]
  - Dizziness [Unknown]
  - Fall [Recovered/Resolved]
  - Vertigo [Unknown]
  - Blepharitis [Unknown]
  - Dry eye [Unknown]
  - Refraction disorder [Unknown]
  - Ataxia [Unknown]
  - Carpal tunnel syndrome [Unknown]
  - Nerve compression [Unknown]
  - Dermatochalasis [Unknown]
  - Melanocytic naevus [Unknown]
  - Sensory loss [Unknown]
  - Fall [Recovered/Resolved]
  - Musculoskeletal chest pain [Recovered/Resolved]

NARRATIVE: CASE EVENT DATE: 20160208
